FAERS Safety Report 9553642 (Version 2)
Quarter: 2014Q3

REPORT INFORMATION
  Report Type: Spontaneous
  Country: US (occurrence: None)
  Receive Date: 20130916
  Receipt Date: 20140915
  Transmission Date: 20150326
  Serious: Yes (Other)
  Sender: FDA-Public Use
  Company Number: JPI-P-017023

PATIENT
  Age: 41 Year
  Sex: Female
  Weight: 81.4 kg

DRUGS (4)
  1. ARMODAFINIL. [Suspect]
     Active Substance: ARMODAFINIL
     Indication: CATAPLEXY
     Dates: start: 201101
  2. XYREM [Suspect]
     Active Substance: SODIUM OXYBATE
     Indication: NARCOLEPSY
     Dosage: 4.5 GM (2.25 GM, 2 IN 1 D), ORAL
     Route: 048
     Dates: start: 201105, end: 2011
  3. XYREM [Suspect]
     Active Substance: SODIUM OXYBATE
     Indication: CATAPLEXY
     Dosage: 4.5 GM (2.25 GM, 2 IN 1 D), ORAL
     Route: 048
     Dates: start: 201105, end: 2011
  4. IBUPROFEN. [Concomitant]
     Active Substance: IBUPROFEN

REACTIONS (13)
  - Hair growth abnormal [None]
  - Dyspnoea [None]
  - Feeling drunk [None]
  - Blood potassium decreased [None]
  - Enuresis [None]
  - Feeling abnormal [None]
  - Weight decreased [None]
  - Dysgeusia [None]
  - Dysphonia [None]
  - Muscle spasms [None]
  - Pain [None]
  - Chest discomfort [None]
  - Dehydration [None]

NARRATIVE: CASE EVENT DATE: 2011
